FAERS Safety Report 13491616 (Version 2)
Quarter: 2017Q3

REPORT INFORMATION
  Report Type: Spontaneous
  Country: US (occurrence: US)
  Receive Date: 20170427
  Receipt Date: 20170727
  Transmission Date: 20171127
  Serious: No
  Sender: FDA-Public Use
  Company Number: US-JNJFOC-20170425543

PATIENT
  Age: 56 Year
  Sex: Male
  Weight: 97.52 kg

DRUGS (2)
  1. MENS ROGAINE EXTRA STRENGTH [Suspect]
     Active Substance: MINOXIDIL
     Indication: ALOPECIA
     Dosage: TWO DROPS
     Route: 061
     Dates: start: 20170301, end: 20170327
  2. MENS ROGAINE EXTRA STRENGTH [Suspect]
     Active Substance: MINOXIDIL
     Route: 061

REACTIONS (4)
  - Skin burning sensation [Recovering/Resolving]
  - Product quality issue [Unknown]
  - Incorrect dose administered [Recovering/Resolving]
  - Inappropriate schedule of drug administration [Recovering/Resolving]

NARRATIVE: CASE EVENT DATE: 20170301
